FAERS Safety Report 9143699 (Version 8)
Quarter: 2013Q3

REPORT INFORMATION
  Report Type: Spontaneous
  Country: US (occurrence: US)
  Receive Date: 20130306
  Receipt Date: 20130802
  Transmission Date: 20140515
  Serious: Yes (Death, Hospitalization, Other)
  Sender: FDA-Public Use
  Company Number: US-GILEAD-2013-0070427

PATIENT
  Age: 68 Year
  Sex: Female

DRUGS (11)
  1. LETAIRIS [Suspect]
     Indication: COR PULMONALE CHRONIC
     Dosage: 10MG PER DAY
     Route: 065
     Dates: start: 20080616
  2. LETAIRIS [Suspect]
     Indication: COR PULMONALE CHRONIC
  3. FLOLAN [Suspect]
     Indication: COR PULMONALE CHRONIC
     Dosage: 35.49 NG/KG/MIN
     Route: 042
     Dates: start: 20120229
  4. REVATIO [Suspect]
     Indication: PRODUCT USED FOR UNKNOWN INDICATION
     Route: 065
  5. REVATIO [Suspect]
     Indication: PRODUCT USED FOR UNKNOWN INDICATION
     Dosage: UNK
     Route: 065
  6. REVATIO [Suspect]
     Dosage: UNK
     Route: 065
  7. REVATIO [Suspect]
     Dosage: UNK
     Route: 065
  8. REVATIO [Suspect]
     Route: 065
  9. REVATIO [Suspect]
     Route: 065
  10. REVATIO [Suspect]
     Route: 065
  11. PREDNISONE [Suspect]
     Indication: PRODUCT USED FOR UNKNOWN INDICATION

REACTIONS (30)
  - Death [Fatal]
  - Renal failure acute [Recovered/Resolved]
  - Dehydration [Unknown]
  - Blood glucose increased [Unknown]
  - Systemic lupus erythematosus [Unknown]
  - White blood cell count decreased [Unknown]
  - Catheter site related reaction [Unknown]
  - Epistaxis [Not Recovered/Not Resolved]
  - General physical health deterioration [Unknown]
  - Mobility decreased [Unknown]
  - Diabetes mellitus [Recovered/Resolved]
  - Oxygen consumption increased [Unknown]
  - Adverse drug reaction [Unknown]
  - Pain in jaw [Unknown]
  - Walking distance test abnormal [Unknown]
  - Malaise [Unknown]
  - Diarrhoea [Unknown]
  - Red blood cell count decreased [Unknown]
  - Anaemia [Unknown]
  - Oedema [Unknown]
  - Dyspnoea [Unknown]
  - Abdominal distension [Unknown]
  - Palpitations [Unknown]
  - Fluid retention [Unknown]
  - Oedema peripheral [Unknown]
  - Abdominal pain [Unknown]
  - Fluid retention [Unknown]
  - Fatigue [Unknown]
  - Blood glucose increased [Unknown]
  - Fluid retention [Unknown]
